FAERS Safety Report 13905281 (Version 6)
Quarter: 2017Q4

REPORT INFORMATION
  Report Type: Report from Study
  Country: GB (occurrence: GB)
  Receive Date: 20170825
  Receipt Date: 20171208
  Transmission Date: 20180320
  Serious: Yes (Death, Other)
  Sender: FDA-Public Use
  Company Number: GB-JNJFOC-20170821440

PATIENT
  Sex: Female
  Weight: 81 kg

DRUGS (1)
  1. STELARA [Suspect]
     Active Substance: USTEKINUMAB
     Indication: PSORIASIS
     Route: 058
     Dates: start: 20160425

REACTIONS (2)
  - Pancreatic carcinoma metastatic [Fatal]
  - Liver abscess [Fatal]
